FAERS Safety Report 7104986-6 (Version None)
Quarter: 2010Q4

REPORT INFORMATION
  Report Type: 
  Country: None (occurrence: None)
  Receive Date: 20101116
  Receipt Date: 20101104
  Transmission Date: 20110411
  Serious: Yes (Other)
  Sender: FDA-Public Use
  Company Number: PHFR2010GB05223

PATIENT
  Age: 40 Year
  Sex: Female

DRUGS (4)
  1. ACLASTA [Suspect]
     Indication: BREAST CANCER
     Dosage: 5 MG, UNK
     Dates: start: 20100101
  2. HERCEPTIN [Concomitant]
     Dosage: UNK
     Dates: end: 20100801
  3. ZOLADEX [Concomitant]
     Dosage: UNK
  4. ARIMIDEX [Concomitant]
     Dosage: UNK

REACTIONS (1)
  - METASTASES TO BONE [None]
